FAERS Safety Report 17760256 (Version 1)
Quarter: 2020Q2

REPORT INFORMATION
  Report Type: Spontaneous
  Country: US (occurrence: US)
  Receive Date: 20200507
  Receipt Date: 20200507
  Transmission Date: 20200714
  Serious: No
  Sender: FDA-Public Use
  Company Number: None

PATIENT
  Age: 65 Year
  Sex: Female

DRUGS (7)
  1. TOBI PODHALER [Suspect]
     Active Substance: TOBRAMYCIN
     Indication: BRONCHITIS
     Route: 048
  2. CARVEDILOL. [Concomitant]
     Active Substance: CARVEDILOL
     Dates: start: 20191023
  3. SERTRALINE TAB [Concomitant]
     Active Substance: SERTRALINE HYDROCHLORIDE
     Dates: start: 20190404
  4. IBANDRONATE TAB [Concomitant]
     Dates: start: 20191028
  5. SMZ/TMP DS TAB [Concomitant]
     Dosage: ?          OTHER DOSE:800-160;?
     Dates: start: 20200317
  6. ASMANEX 120 AER [Concomitant]
     Dates: start: 20200121
  7. MONTELUKAST TAB [Concomitant]
     Dates: start: 20191027

REACTIONS (1)
  - Off label use [None]

NARRATIVE: CASE EVENT DATE: 20200507
